FAERS Safety Report 13256606 (Version 1)
Quarter: 2017Q1

REPORT INFORMATION
  Report Type: Spontaneous
  Country: US (occurrence: US)
  Receive Date: 20170220
  Receipt Date: 20170220
  Transmission Date: 20170428
  Serious: No
  Sender: FDA-Public Use
  Company Number: None

PATIENT
  Age: 65 Year
  Sex: Female
  Weight: 69.75 kg

DRUGS (6)
  1. ASMANEX [Concomitant]
     Active Substance: MOMETASONE FUROATE
  2. ARMOURTHYROID [Concomitant]
  3. MULTI VITAMIN [Concomitant]
     Active Substance: VITAMINS
  4. THYRO-COMPLEX [Concomitant]
  5. LEVALBUTEROL. [Concomitant]
     Active Substance: LEVALBUTEROL
  6. OSELTAMIVIR PHOSPHATE. [Suspect]
     Active Substance: OSELTAMIVIR PHOSPHATE
     Indication: INFLUENZA
     Dosage: ?          QUANTITY:1 CAPSULE(S);?
     Route: 048
     Dates: start: 20170201, end: 20170203

REACTIONS (4)
  - Pruritus [None]
  - Burning sensation [None]
  - Hypersensitivity [None]
  - Cough [None]

NARRATIVE: CASE EVENT DATE: 20170202
